FAERS Safety Report 12957913 (Version 3)
Quarter: 2017Q1

REPORT INFORMATION
  Report Type: Report from Study
  Country: None (occurrence: SA)
  Receive Date: 20161118
  Receipt Date: 20170314
  Transmission Date: 20170428
  Serious: Yes (Hospitalization)
  Sender: FDA-Public Use
  Company Number: SA-ABBVIE-16P-259-1786205-00

PATIENT
  Age: 45 Year
  Sex: Female

DRUGS (2)
  1. VIEKIRAX [Suspect]
     Active Substance: OMBITASVIR\PARITAPREVIR\RITONAVIR
     Route: 048
     Dates: start: 20161014
  2. VIEKIRAX [Suspect]
     Active Substance: OMBITASVIR\PARITAPREVIR\RITONAVIR
     Indication: HEPATITIS C
     Route: 048
     Dates: start: 20161001, end: 20161004

REACTIONS (3)
  - Cough [Recovered/Resolved]
  - Bronchitis [Recovered/Resolved]
  - Lower respiratory tract infection [Recovered/Resolved]
